FAERS Safety Report 9356234 (Version 1)
Quarter: 2013Q2

REPORT INFORMATION
  Report Type: Spontaneous
  Country: CO (occurrence: CO)
  Receive Date: 20130619
  Receipt Date: 20130619
  Transmission Date: 20140414
  Serious: Yes (Other)
  Sender: FDA-Public Use
  Company Number: CO-AMGEN-COLSP2013042687

PATIENT
  Age: 49 Year
  Sex: Female

DRUGS (2)
  1. ENBREL [Suspect]
     Indication: RHEUMATOID ARTHRITIS
     Dosage: 50 MG, WEEKLY
     Route: 058
     Dates: start: 2011
  2. DICLOFENAC [Concomitant]
     Indication: PAIN
     Dosage: UNK
     Route: 048
     Dates: start: 2008, end: 2012

REACTIONS (4)
  - Vaginal haemorrhage [Not Recovered/Not Resolved]
  - Knee deformity [Not Recovered/Not Resolved]
  - Acne [Not Recovered/Not Resolved]
  - Influenza [Recovered/Resolved]
